FAERS Safety Report 10717132 (Version 1)
Quarter: 2015Q1

REPORT INFORMATION
  Report Type: Spontaneous
  Country: FR (occurrence: FR)
  Receive Date: 20150116
  Receipt Date: 20150116
  Transmission Date: 20150721
  Serious: Yes (Other)
  Sender: FDA-Public Use
  Company Number: FR-VIVUS-2014V1000374

PATIENT
  Age: 63 Year
  Sex: Male
  Weight: 70 kg

DRUGS (1)
  1. SPEDRA [Suspect]
     Active Substance: AVANAFIL
     Indication: ERECTILE DYSFUNCTION
     Dosage: A SINGLE DOSE
     Route: 048
     Dates: start: 20140514, end: 20140514

REACTIONS (3)
  - Vision blurred [None]
  - Vitreous detachment [None]
  - Vitreous disorder [Recovering/Resolving]

NARRATIVE: CASE EVENT DATE: 20140514
